FAERS Safety Report 20238444 (Version 2)
Quarter: 2022Q1

REPORT INFORMATION
  Report Type: Spontaneous
  Country: US (occurrence: US)
  Receive Date: 20211228
  Receipt Date: 20220315
  Transmission Date: 20220423
  Serious: No
  Sender: FDA-Public Use
  Company Number: US-PFIZER INC-2020406329

PATIENT
  Age: 48 Year
  Sex: Female

DRUGS (1)
  1. XELJANZ XR [Suspect]
     Active Substance: TOFACITINIB CITRATE
     Indication: Psoriatic arthropathy
     Dosage: 11 MG, 1X/DAY, (ONCE DAILY XELJANZ XR: 11 MG PO)
     Route: 048

REACTIONS (4)
  - Arthritis [Unknown]
  - Product prescribing error [Unknown]
  - Uterine leiomyoma [Unknown]
  - Skin fissures [Unknown]
